FAERS Safety Report 7425659-6 (Version None)
Quarter: 2011Q2

REPORT INFORMATION
  Report Type: 
  Country: None (occurrence: None)
  Receive Date: 20110412
  Receipt Date: 20110331
  Transmission Date: 20111010
  Serious: Yes (Death, Life-Threatening, Hospitalization)
  Sender: FDA-Public Use
  Company Number: 1000019707

PATIENT
  Age: 80 Year
  Sex: Male

DRUGS (3)
  1. ROFLUMILAST (ROFLUMILASR) (500 MICRGRAM, TABLETS) [Suspect]
     Indication: CHRONIC OBSTRUCTIVE PULMONARY DISEASE
     Dosage: 500 MCG (500 MCG,1 IN 1 D), ORAL
     Route: 048
     Dates: start: 20101213, end: 20110119
  2. ACE INHIBITOR NOS (ACE INHIBITOR NOS) (ACE INHIBITOR NOS) [Concomitant]
  3. AMITRIPTYLINE (AMINTRIPTYLINE) (AMITRIPTYLINE) [Concomitant]

REACTIONS (7)
  - COMPLETED SUICIDE [None]
  - CONDITION AGGRAVATED [None]
  - TINNITUS [None]
  - INSOMNIA [None]
  - PAIN IN EXTREMITY [None]
  - NERVOUSNESS [None]
  - PARAESTHESIA [None]
